FAERS Safety Report 8330421-6 (Version None)
Quarter: 2012Q2

REPORT INFORMATION
  Report Type: 
  Country: None (occurrence: None)
  Receive Date: 20120502
  Receipt Date: 20120419
  Transmission Date: 20120825
  Serious: Yes (Hospitalization)
  Sender: FDA-Public Use
  Company Number: CI-MYLANLABS-2012S1008445

PATIENT
  Age: 80 Year
  Sex: Male

DRUGS (2)
  1. SIMVASTATIN [Suspect]
     Indication: HYPERCHOLESTEROLAEMIA
     Dosage: 20MG DAILY
     Route: 065
  2. DILTIAZEM [Interacting]
     Indication: HYPERTENSION
     Dosage: 300MG DAILY
     Route: 065

REACTIONS (2)
  - CHYLOTHORAX [None]
  - POTENTIATING DRUG INTERACTION [None]
